FAERS Safety Report 7505985-2 (Version None)
Quarter: 2011Q2

REPORT INFORMATION
  Report Type: 
  Country: None (occurrence: None)
  Receive Date: 20110526
  Receipt Date: 20110512
  Transmission Date: 20111010
  Serious: Yes (Hospitalization, Other)
  Sender: FDA-Public Use
  Company Number: PHHY2011DE41046

PATIENT
  Age: 74 Year
  Sex: Female

DRUGS (9)
  1. LANTUS [Concomitant]
     Indication: DIABETES MELLITUS
     Dosage: 16-22 IE IN THE EVENING
     Route: 058
     Dates: start: 20101201
  2. LEVOTHYROXINE SODIUM [Concomitant]
     Indication: HYPOTHYROIDISM
     Dosage: 50 UG, 1-0-0
     Route: 048
  3. GLIMEPIRIDE [Concomitant]
     Indication: DIABETES MELLITUS
     Dosage: 4 MG, 1-0-0
     Route: 048
     Dates: start: 20101201
  4. AFINITOR [Suspect]
     Indication: RENAL CELL CARCINOMA
     Dosage: 5 MG, QD FOR 4 WEEKS FOLLOWED BY 2 WEEKS REST
     Route: 048
     Dates: start: 20101101, end: 20110301
  5. DIOVAN [Concomitant]
     Indication: HYPERTENSION
     Dosage: 80 MG, 1-0-0
     Route: 048
  6. BISOPROLOL FUMARATE [Concomitant]
     Indication: HYPERTENSION
     Dosage: 5 MG, 1-0-1
     Route: 048
  7. ALLOPURINOL [Concomitant]
     Indication: HYPERURICAEMIA
     Dosage: 300 MG, ONCE DAILY
     Route: 048
  8. AFINITOR [Suspect]
     Dosage: 10 MG, QD FOR 4 WEEKS FOLLOWED BY 2 WEEKS REST
     Route: 048
     Dates: start: 20110415, end: 20110427
  9. RADIOTHERAPY [Concomitant]
     Dosage: UNK
     Dates: start: 20110428

REACTIONS (9)
  - DIABETES MELLITUS [None]
  - SCOTOMA [None]
  - SHOCK [None]
  - METASTASES TO LYMPH NODES [None]
  - LIVER FUNCTION TEST ABNORMAL [None]
  - RETINAL HAEMORRHAGE [None]
  - VISUAL IMPAIRMENT [None]
  - RENAL FUNCTION TEST ABNORMAL [None]
  - DRUG ADMINISTRATION ERROR [None]
